FAERS Safety Report 18608160 (Version 1)
Quarter: 2020Q4

REPORT INFORMATION
  Report Type: Spontaneous
  Country: FR (occurrence: FR)
  Receive Date: 20201211
  Receipt Date: 20201211
  Transmission Date: 20210114
  Serious: Yes (Hospitalization)
  Sender: FDA-Public Use
  Company Number: FR-BIODELIVERY SCIENCES INTERNATIONAL-2020BDSI0742

PATIENT
  Age: 40 Year
  Sex: Male

DRUGS (2)
  1. TRAMADOL. [Suspect]
     Active Substance: TRAMADOL
     Indication: PAIN
     Dosage: PRN
     Route: 048
  2. FENTANYL CITRATE. [Suspect]
     Active Substance: FENTANYL CITRATE
     Indication: PAIN
     Route: 002
     Dates: end: 2018

REACTIONS (1)
  - Drug use disorder [Recovering/Resolving]
